FAERS Safety Report 9002192 (Version 2)
Quarter: 2013Q2

REPORT INFORMATION
  Report Type: Spontaneous
  Country: US (occurrence: US)
  Receive Date: 20130107
  Receipt Date: 20130426
  Transmission Date: 20140414
  Serious: No
  Sender: FDA-Public Use
  Company Number: US-009507513-1212USA010824

PATIENT
  Age: 27 Year
  Sex: Female
  Weight: 58.5 kg

DRUGS (2)
  1. NUVARING [Suspect]
     Indication: CONTRACEPTION
     Dosage: 1 RING FOR 3 WEEKS FOLLOWED BY A WEEK FREE BREAK
     Route: 067
     Dates: start: 2007, end: 20121209
  2. ALLEGRA [Concomitant]

REACTIONS (6)
  - Urinary tract infection [Unknown]
  - Fungal infection [Unknown]
  - Breast tenderness [Unknown]
  - Abdominal distension [Unknown]
  - Dysmenorrhoea [Unknown]
  - Vaginal discharge [Recovered/Resolved]
